FAERS Safety Report 20614360 (Version 1)
Quarter: 2022Q1

REPORT INFORMATION
  Report Type: Spontaneous
  Country: US (occurrence: US)
  Receive Date: 20220321
  Receipt Date: 20220321
  Transmission Date: 20220423
  Serious: Yes (Death, Other)
  Sender: FDA-Public Use
  Company Number: US-BIOVITRUM-2021US11127

PATIENT
  Age: 1 Year
  Sex: Female
  Weight: 7 kg

DRUGS (17)
  1. SYNAGIS [Suspect]
     Active Substance: PALIVIZUMAB
     Indication: Premature baby
     Dosage: 100MG/1ML VL LIQUID
     Route: 030
     Dates: start: 202110
  2. PHENOBARBITAL [Concomitant]
     Active Substance: PHENOBARBITAL
  3. KEPPRA [Concomitant]
     Active Substance: LEVETIRACETAM
     Dosage: 100 MG/ML SOLUTION
  4. PEPCID [Concomitant]
     Active Substance: FAMOTIDINE
  5. POTASSIUM [Concomitant]
     Active Substance: POTASSIUM
     Dosage: 595(99)MG
  6. LASIX [Concomitant]
     Active Substance: FUROSEMIDE
  7. DIURIL [Concomitant]
     Active Substance: CHLOROTHIAZIDE
     Dosage: 250 MG/5ML
  8. LISINOPRIL [Concomitant]
     Active Substance: LISINOPRIL
  9. ALDACTONE [Concomitant]
     Active Substance: SPIRONOLACTONE
  10. CAPTOPRIL [Concomitant]
     Active Substance: CAPTOPRIL
  11. SYNAGIS [Suspect]
     Active Substance: PALIVIZUMAB
     Indication: Heart disease congenital
  12. AUGMENTIN [Concomitant]
     Active Substance: AMOXICILLIN\CLAVULANATE POTASSIUM
  13. METOPROLOL [Concomitant]
     Active Substance: METOPROLOL
  14. SYNAGIS [Suspect]
     Active Substance: PALIVIZUMAB
     Indication: Trisomy 21
  15. DIGOXIN [Concomitant]
     Active Substance: DIGOXIN
  16. ASPIRIN [Concomitant]
     Active Substance: ASPIRIN
  17. SYNAGIS [Suspect]
     Active Substance: PALIVIZUMAB
     Indication: Low birth weight baby

REACTIONS (1)
  - Death [Fatal]

NARRATIVE: CASE EVENT DATE: 20220307
